FAERS Safety Report 25903368 (Version 1)
Quarter: 2025Q4

REPORT INFORMATION
  Report Type: Spontaneous
  Country: US (occurrence: US)
  Receive Date: 20251009
  Receipt Date: 20251009
  Transmission Date: 20260118
  Serious: No
  Sender: CB FLEET
  Company Number: US-PRESTIGE-202507-US-002013

PATIENT

DRUGS (1)
  1. MONISTAT 7 COMBINATION PACK [Suspect]
     Active Substance: MICONAZOLE NITRATE
     Indication: Fungal infection
     Dosage: UNKNOWN

REACTIONS (1)
  - Pain [Unknown]
